FAERS Safety Report 20755695 (Version 2)
Quarter: 2022Q3

REPORT INFORMATION
  Report Type: Spontaneous
  Country: LU (occurrence: LU)
  Receive Date: 20220427
  Receipt Date: 20220715
  Transmission Date: 20221027
  Serious: Yes (Death, Hospitalization, Other)
  Sender: FDA-Public Use
  Company Number: None

PATIENT
  Age: 61 Year
  Sex: Female
  Weight: 60 kg

DRUGS (8)
  1. OPDIVO [Suspect]
     Active Substance: NIVOLUMAB
     Indication: Lung adenocarcinoma
     Route: 042
     Dates: start: 20210727
  2. OPDIVO [Suspect]
     Active Substance: NIVOLUMAB
     Route: 042
     Dates: start: 20210820
  3. MODERNA COVID-19 VACCINE [Suspect]
     Active Substance: ELASOMERAN
     Indication: COVID-19 immunisation
     Dosage: D2
     Route: 030
     Dates: start: 20210430, end: 20210430
  4. MODERNA COVID-19 VACCINE [Suspect]
     Active Substance: ELASOMERAN
     Dosage: D1
     Route: 030
     Dates: start: 20210316, end: 20210316
  5. SIMVASTATIN [Concomitant]
     Active Substance: SIMVASTATIN
  6. Nobiten 5 mg [Concomitant]
     Indication: Product used for unknown indication
     Route: 065
  7. Nobiten 5 mg [Concomitant]
  8. Nobiten 5 mg [Concomitant]

REACTIONS (4)
  - Pulmonary embolism [Fatal]
  - Deep vein thrombosis [Unknown]
  - Thrombocytopenia [Unknown]
  - Malignant neoplasm progression [Fatal]

NARRATIVE: CASE EVENT DATE: 20210809
